FAERS Safety Report 4891490-9 (Version None)
Quarter: 2006Q1

REPORT INFORMATION
  Report Type: 
  Country: None (occurrence: None)
  Receive Date: 20060125
  Receipt Date: 20060118
  Transmission Date: 20060701
  Serious: Yes (Other)
  Sender: FDA-Public Use
  Company Number: US-MERCK-0601USA02188

PATIENT
  Sex: Female

DRUGS (1)
  1. VIOXX [Suspect]
     Route: 048
     Dates: start: 20010815, end: 20040801

REACTIONS (4)
  - CEREBROVASCULAR ACCIDENT [None]
  - DILATATION ATRIAL [None]
  - PULMONARY THROMBOSIS [None]
  - THROMBOSIS [None]
